FAERS Safety Report 14031666 (Version 2)
Quarter: 2017Q4

REPORT INFORMATION
  Report Type: Report from Study
  Country: None (occurrence: ES)
  Receive Date: 20171003
  Receipt Date: 20171219
  Transmission Date: 20180321
  Serious: Yes (Hospitalization, Other)
  Sender: FDA-Public Use
  Company Number: ES-ABBVIE-17K-144-2113286-00

PATIENT
  Age: 79 Year
  Sex: Male
  Weight: 62 kg

DRUGS (4)
  1. HUMIRA [Suspect]
     Active Substance: ADALIMUMAB
     Indication: SPONDYLITIS
     Route: 058
     Dates: start: 2017
  2. HUMIRA [Suspect]
     Active Substance: ADALIMUMAB
     Indication: SPONDYLITIS
     Route: 058
     Dates: start: 2003, end: 2017
  3. BISOPROLOL [Concomitant]
     Active Substance: BISOPROLOL
     Indication: ARRHYTHMIA
     Route: 048
     Dates: start: 2016
  4. SINTROM [Suspect]
     Active Substance: ACENOCOUMAROL
     Indication: ARRHYTHMIA
     Dosage: INR LEVELS DEPENDENT
     Route: 048
     Dates: start: 2016

REACTIONS (8)
  - Decreased appetite [Recovered/Resolved]
  - Anaemia [Recovering/Resolving]
  - Haematemesis [Recovered/Resolved]
  - Bone marrow failure [Unknown]
  - Meniscus injury [Not Recovered/Not Resolved]
  - Gastric ulcer [Recovered/Resolved]
  - Gastric ulcer haemorrhage [Recovered/Resolved]
  - Pain in extremity [Not Recovered/Not Resolved]

NARRATIVE: CASE EVENT DATE: 201706
